FAERS Safety Report 12751873 (Version 1)
Quarter: 2016Q3

REPORT INFORMATION
  Report Type: Spontaneous
  Country: NL (occurrence: NL)
  Receive Date: 20160915
  Receipt Date: 20160915
  Transmission Date: 20161109
  Serious: No
  Sender: FDA-Public Use
  Company Number: NL-JAZZ-2016-NL-014576

PATIENT

DRUGS (1)
  1. ERWINASE [Suspect]
     Active Substance: ASPARAGINASE ERWINIA CHRYSANTHEMI
     Indication: ACUTE LYMPHOCYTIC LEUKAEMIA
     Dosage: 20,000 IU/M2, THREE TIMES PER WEEK, INTENSIFICATION 14
     Route: 042

REACTIONS (1)
  - Vomiting [Unknown]
